FAERS Safety Report 7300975-7 (Version None)
Quarter: 2011Q1

REPORT INFORMATION
  Report Type: 
  Country: None (occurrence: None)
  Receive Date: 20110110
  Receipt Date: 20101111
  Transmission Date: 20110831
  Serious: No
  Sender: FDA-Public Use
  Company Number: 2010IP000142

PATIENT
  Age: 57 Year
  Weight: 58.0604 kg

DRUGS (5)
  1. BEPREVE [Suspect]
     Indication: LACRIMATION INCREASED
     Dosage: 1 GTT; BID RN; OPH
     Route: 047
     Dates: start: 20101015, end: 20101107
  2. BEPREVE [Suspect]
     Indication: EYE PRURITUS
     Dosage: 1 GTT; BID RN; OPH
     Route: 047
     Dates: start: 20101015, end: 20101107
  3. ZYRTEC [Concomitant]
  4. RAMIPRIL [Concomitant]
  5. CRESTOR [Concomitant]

REACTIONS (1)
  - DRUG INEFFECTIVE [None]
